FAERS Safety Report 7205647-5 (Version None)
Quarter: 2010Q4

REPORT INFORMATION
  Report Type: 
  Country: None (occurrence: None)
  Receive Date: 20101231
  Receipt Date: 20101220
  Transmission Date: 20110411
  Serious: Yes (Hospitalization, Disabling, Other)
  Sender: FDA-Public Use
  Company Number: US-ELI_LILLY_AND_COMPANY-US201004001299

PATIENT
  Sex: Female

DRUGS (13)
  1. FORTEO [Suspect]
     Indication: OSTEOPOROSIS
     Dosage: 20 UG, DAILY (1/D)
  2. FORTEO [Suspect]
     Dosage: 20 UG, DAILY (1/D)
     Dates: end: 20101214
  3. DARVOCET [Concomitant]
  4. NORCO [Concomitant]
     Dosage: UNK, AS NEEDED
  5. ZANTAC [Concomitant]
  6. SYNTHROID [Concomitant]
     Indication: THYROID DISORDER
  7. AMLODIPINE [Concomitant]
  8. BENAZEPRIL [Concomitant]
  9. CARDURA [Concomitant]
  10. LASIX [Concomitant]
  11. MULTI-VITAMIN [Concomitant]
  12. CALCIUM W/VITAMIN D NOS [Concomitant]
  13. PLAVIX [Concomitant]

REACTIONS (14)
  - DEVICE DISLOCATION [None]
  - DIZZINESS [None]
  - FALL [None]
  - FEAR [None]
  - FRACTURE NONUNION [None]
  - HUMERUS FRACTURE [None]
  - HYPERTENSION [None]
  - HYPOAESTHESIA [None]
  - IMPAIRED HEALING [None]
  - MUSCULOSKELETAL STIFFNESS [None]
  - NERVE INJURY [None]
  - PAIN [None]
  - THROAT IRRITATION [None]
  - UPPER LIMB FRACTURE [None]
